FAERS Safety Report 14495210 (Version 2)
Quarter: 2025Q2

REPORT INFORMATION
  Report Type: Spontaneous
  Country: CA (occurrence: CA)
  Receive Date: 20180206
  Receipt Date: 20250402
  Transmission Date: 20250717
  Serious: Yes (Death, Hospitalization, Disabling, Other)
  Sender: BAUSCH AND LOMB
  Company Number: CA-BAUSCH-BL-2018-002872

PATIENT
  Age: 62 Year
  Sex: Male
  Weight: 92 kg

DRUGS (23)
  1. RIFAMPIN [Suspect]
     Active Substance: RIFAMPIN
     Indication: Paraspinal abscess
     Dosage: NOT SPECIFIED
     Route: 048
  2. RIFAMPIN [Suspect]
     Active Substance: RIFAMPIN
     Indication: Osteomyelitis
  3. RIFAMPIN [Suspect]
     Active Substance: RIFAMPIN
     Indication: Intervertebral discitis
  4. CEFTAROLINE FOSAMIL [Suspect]
     Active Substance: CEFTAROLINE FOSAMIL
     Indication: Paraspinal abscess
     Route: 042
  5. CEFTAROLINE FOSAMIL [Suspect]
     Active Substance: CEFTAROLINE FOSAMIL
     Indication: Osteomyelitis
  6. CEFTAROLINE FOSAMIL [Suspect]
     Active Substance: CEFTAROLINE FOSAMIL
     Indication: Intervertebral discitis
  7. CUBICIN [Suspect]
     Active Substance: DAPTOMYCIN
     Indication: Paraspinal abscess
     Route: 065
  8. CUBICIN [Suspect]
     Active Substance: DAPTOMYCIN
     Indication: Osteomyelitis
     Dosage: POWDER FOR SOLUTION FOR INTRAVENOUS
     Route: 042
  9. CUBICIN [Suspect]
     Active Substance: DAPTOMYCIN
     Indication: Intervertebral discitis
     Route: 042
  10. CUBICIN [Suspect]
     Active Substance: DAPTOMYCIN
     Route: 042
  11. CUBICIN [Suspect]
     Active Substance: DAPTOMYCIN
     Route: 065
  12. LINEZOLID [Suspect]
     Active Substance: LINEZOLID
     Indication: Paraspinal abscess
     Route: 048
  13. LINEZOLID [Suspect]
     Active Substance: LINEZOLID
     Indication: Osteomyelitis
     Route: 065
  14. LINEZOLID [Suspect]
     Active Substance: LINEZOLID
     Indication: Intervertebral discitis
     Dosage: APO-LINEZOLID
     Route: 048
  15. TIGECYCLINE [Suspect]
     Active Substance: TIGECYCLINE
     Indication: Paraspinal abscess
     Route: 042
  16. TIGECYCLINE [Suspect]
     Active Substance: TIGECYCLINE
     Indication: Osteomyelitis
     Route: 042
  17. TIGECYCLINE [Suspect]
     Active Substance: TIGECYCLINE
     Indication: Intervertebral discitis
     Route: 042
  18. DOXYCYCLINE [Suspect]
     Active Substance: DOXYCYCLINE
     Indication: Paraspinal abscess
     Dosage: NOT SPECIFIED
     Route: 048
  19. DOXYCYCLINE [Suspect]
     Active Substance: DOXYCYCLINE
     Indication: Osteomyelitis
  20. DOXYCYCLINE [Suspect]
     Active Substance: DOXYCYCLINE
     Indication: Intervertebral discitis
  21. VANCOMYCIN [Suspect]
     Active Substance: VANCOMYCIN
     Indication: Paraspinal abscess
     Route: 042
  22. VANCOMYCIN [Suspect]
     Active Substance: VANCOMYCIN
     Indication: Osteomyelitis
  23. VANCOMYCIN [Suspect]
     Active Substance: VANCOMYCIN
     Indication: Intervertebral discitis

REACTIONS (6)
  - Hypophagia [Fatal]
  - Staphylococcal infection [Fatal]
  - Thrombocytopenia [Fatal]
  - Transaminases increased [Fatal]
  - Treatment failure [Fatal]
  - General physical health deterioration [Fatal]
